FAERS Safety Report 9162292 (Version 1)
Quarter: 2013Q1

REPORT INFORMATION
  Report Type: Spontaneous
  Country: SE (occurrence: None)
  Receive Date: 20130222
  Receipt Date: 20130222
  Transmission Date: 20140127
  Serious: Yes (Hospitalization)
  Sender: FDA-Public Use
  Company Number: SYM-2013-00805

PATIENT
  Age: 78 Year
  Sex: Male

DRUGS (1)
  1. ENALAPRIL MALEATE [Suspect]
     Indication: ESSENTIAL HYPERTENSION
     Route: 048

REACTIONS (3)
  - Angioedema [None]
  - Tongue oedema [None]
  - Lip swelling [None]
